FAERS Safety Report 11913242 (Version 1)
Quarter: 2016Q1

REPORT INFORMATION
  Report Type: Spontaneous
  Country: US (occurrence: None)
  Receive Date: 20160112
  Receipt Date: 20160112
  Transmission Date: 20160526
  Serious: Yes (Disabling, Other)
  Sender: FDA-Public Use
  Company Number: None

PATIENT
  Age: 82 Year
  Sex: Female
  Weight: 52.16 kg

DRUGS (1)
  1. LIALDA [Suspect]
     Active Substance: MESALAMINE
     Indication: COLITIS
     Dosage: 4
     Route: 048
     Dates: start: 20160108, end: 20160111

REACTIONS (5)
  - Mobility decreased [None]
  - Fall [None]
  - Diarrhoea [None]
  - Muscular weakness [None]
  - Decreased appetite [None]

NARRATIVE: CASE EVENT DATE: 20160111
